FAERS Safety Report 23237954 (Version 1)
Quarter: 2023Q4

REPORT INFORMATION
  Report Type: Spontaneous
  Country: GB (occurrence: GB)
  Receive Date: 20231129
  Receipt Date: 20231129
  Transmission Date: 20240109
  Serious: Yes (Hospitalization)
  Sender: FDA-Public Use
  Company Number: None

PATIENT
  Age: 43 Year
  Sex: Male

DRUGS (9)
  1. REMICADE [Suspect]
     Active Substance: INFLIXIMAB
     Indication: Product used for unknown indication
     Route: 041
  2. PENTASA [Concomitant]
     Active Substance: MESALAMINE
     Dosage: AT NIGHT
  3. MESALAMINE [Concomitant]
     Active Substance: MESALAMINE
  4. CALCIUM CARBONATE\CHOLECALCIFEROL [Concomitant]
     Active Substance: CALCIUM CARBONATE\CHOLECALCIFEROL
     Dosage: EVACAL D3 1500MG/400UNIT CHEWABLE TABLETS (TEVA UK LTD)
  5. AZATHIOPRINE [Concomitant]
     Active Substance: AZATHIOPRINE
     Dosage: 50MG TABLETS THREE TO BE TAKEN EACH DAY- SUSPENDED ACUTELY UNWELL
  6. AZATHIOPRINE [Concomitant]
     Active Substance: AZATHIOPRINE
     Dosage: SUSPENDED ACUTELY UNWELL
  7. OMEPRAZOLE [Concomitant]
     Active Substance: OMEPRAZOLE
  8. OMEPRAZOLE [Concomitant]
     Active Substance: OMEPRAZOLE
  9. PREDNISOLONE [Concomitant]
     Active Substance: PREDNISOLONE
     Dosage: 40MG OM FOR 7 DAYS REDUCING BY 5MG EVERY 7 DAYS - PT?CURRENTLY TAKING 25MG

REACTIONS (1)
  - Tuberculosis [Unknown]
